FAERS Safety Report 6229979-2 (Version None)
Quarter: 2009Q2

REPORT INFORMATION
  Report Type: 
  Country: None (occurrence: None)
  Receive Date: 20090615
  Receipt Date: 20090605
  Transmission Date: 20091009
  Serious: Yes (Hospitalization)
  Sender: FDA-Public Use
  Company Number: FR-ASTRAZENECA-2009CG01199

PATIENT
  Age: 18919 Day
  Sex: Male
  Weight: 65 kg

DRUGS (2)
  1. IRESSA [Suspect]
     Indication: HEAD AND NECK CANCER
     Route: 048
     Dates: start: 20090324, end: 20090504
  2. CISPLATYL [Suspect]
     Indication: HEAD AND NECK CANCER
     Route: 042
     Dates: start: 20090330, end: 20090513

REACTIONS (4)
  - DEHYDRATION [None]
  - DIARRHOEA [None]
  - FEBRILE NEUTROPENIA [None]
  - VOMITING [None]
